FAERS Safety Report 23600251 (Version 1)
Quarter: 2024Q1

REPORT INFORMATION
  Report Type: Spontaneous
  Country: FR (occurrence: FR)
  Receive Date: 20240306
  Receipt Date: 20240306
  Transmission Date: 20240410
  Serious: Yes (Hospitalization, Other)
  Sender: FDA-Public Use
  Company Number: FR-B.Braun Medical Inc.-2154057

PATIENT
  Age: 12 Year
  Sex: Male
  Weight: 30.5 kg

DRUGS (18)
  1. ACETAMINOPHEN [Suspect]
     Active Substance: ACETAMINOPHEN
     Route: 042
     Dates: start: 20231212, end: 20240206
  2. GANCICLOVIR SODIUM [Suspect]
     Active Substance: GANCICLOVIR SODIUM
  3. RITUXIMAB [Concomitant]
     Active Substance: RITUXIMAB
  4. FENTANYL [Concomitant]
     Active Substance: FENTANYL\FENTANYL CITRATE
  5. NPLATE [Concomitant]
     Active Substance: ROMIPLOSTIM
  6. PENTACARINAT [Concomitant]
     Active Substance: PENTAMIDINE ISETHIONATE
  7. ONDANSETRON [Concomitant]
     Active Substance: ONDANSETRON
  8. NICARDIPINE HYDROCHLORIDE [Concomitant]
     Active Substance: NICARDIPINE HYDROCHLORIDE
  9. PIPERACILLIN SODIUM\TAZOBACTAM SODIUM [Concomitant]
     Active Substance: PIPERACILLIN SODIUM\TAZOBACTAM SODIUM
  10. VANCOMYCIN [Concomitant]
     Active Substance: VANCOMYCIN
  11. SPASFON [Concomitant]
  12. AMBISOME [Concomitant]
     Active Substance: AMPHOTERICIN B
  13. TRANEXAMIC ACID [Concomitant]
     Active Substance: TRANEXAMIC ACID
  14. HYDROCORTISONE ACETATE [Concomitant]
     Active Substance: HYDROCORTISONE ACETATE
  15. PANTOPRAZOLE [Concomitant]
     Active Substance: PANTOPRAZOLE
  16. NEFOPAM HYDROCHLORIDE [Concomitant]
     Active Substance: NEFOPAM HYDROCHLORIDE
  17. DEXMEDETOMIDINE [Concomitant]
     Active Substance: DEXMEDETOMIDINE
  18. MIDAZOLAM [Concomitant]
     Active Substance: MIDAZOLAM

REACTIONS (3)
  - Hepatocellular injury [Recovering/Resolving]
  - Off label use [Recovering/Resolving]
  - Lipase increased [Recovering/Resolving]
